FAERS Safety Report 6789413-0 (Version None)
Quarter: 2010Q2

REPORT INFORMATION
  Report Type: 
  Country: None (occurrence: None)
  Receive Date: 20100623
  Receipt Date: 20100616
  Transmission Date: 20101027
  Serious: Yes (Death)
  Sender: FDA-Public Use
  Company Number: HU-ELI_LILLY_AND_COMPANY-HU201006004487

PATIENT
  Age: 73 Year
  Sex: Male

DRUGS (5)
  1. XIGRIS [Suspect]
     Indication: SEPTIC SHOCK
     Dosage: 24 UG/KG, EVERY HOUR
     Dates: start: 20100614
  2. NORADRENALINE [Concomitant]
  3. HYDROCORTISONE [Concomitant]
  4. UNASYN [Concomitant]
  5. CIPROFLOXACIN [Concomitant]

REACTIONS (1)
  - DEATH [None]
